FAERS Safety Report 21300029 (Version 1)
Quarter: 2022Q3

REPORT INFORMATION
  Report Type: Report from Study
  Country: CA (occurrence: CA)
  Receive Date: 20220906
  Receipt Date: 20220906
  Transmission Date: 20221026
  Serious: Yes (Other)
  Sender: FDA-Public Use
  Company Number: CA-JAZZ-2022-CA-028507

PATIENT
  Sex: Female

DRUGS (4)
  1. XYREM [Suspect]
     Active Substance: SODIUM OXYBATE
     Indication: Narcolepsy
     Dosage: 2 GRAM, BID, SECOND DOSE 2.5 -4HRS AFTER
     Dates: start: 20140216, end: 20140301
  2. XYREM [Suspect]
     Active Substance: SODIUM OXYBATE
     Dosage: DOSE ADJUSTMENTS
     Dates: start: 20140302, end: 20200324
  3. XYREM [Suspect]
     Active Substance: SODIUM OXYBATE
     Dosage: 2.5G 1ST DOSE, 2.75G 2ND DOSE AND 2.75G 3RD DOSE
     Dates: start: 20200325
  4. CONCERTA [Concomitant]
     Active Substance: METHYLPHENIDATE HYDROCHLORIDE
     Indication: Product used for unknown indication
     Dosage: UNK

REACTIONS (2)
  - Surgery [Unknown]
  - Intentional dose omission [Unknown]
